FAERS Safety Report 4585432-3 (Version None)
Quarter: 2005Q1

REPORT INFORMATION
  Report Type: 
  Country: None (occurrence: None)
  Receive Date: 20050214
  Receipt Date: 20050208
  Transmission Date: 20050727
  Serious: Yes (Death)
  Sender: FDA-Public Use
  Company Number: 6012991

PATIENT
  Age: 83 Year
  Sex: Male

DRUGS (6)
  1. BISOPROLOL FUMARATE [Suspect]
     Indication: CARDIAC FAILURE CONGESTIVE
     Dosage: 2.5 MG ORAL
     Route: 048
     Dates: start: 20040119
  2. ENALAPRIL MALEATE [Suspect]
     Indication: CARDIAC FAILURE CONGESTIVE
     Dosage: 5 MG ORAL
     Route: 048
     Dates: start: 20031119
  3. WARFARIN SODIUM [Concomitant]
  4. DIURAL             (FUROSEMIDE) [Concomitant]
  5. NEXIUM [Concomitant]
  6. DIGITOXIN TAB [Concomitant]

REACTIONS (1)
  - DEATH [None]
